FAERS Safety Report 5246969-7 (Version None)
Quarter: 2007Q1

REPORT INFORMATION
  Report Type: 
  Country: None (occurrence: None)
  Receive Date: 20070226
  Receipt Date: 20070226
  Transmission Date: 20070707
  Serious: Yes (Hospitalization)
  Sender: FDA-Public Use
  Company Number: US-GLAXOSMITHKLINE-A0640626A

PATIENT
  Age: 73 Year
  Sex: Male
  Weight: 165.1 kg

DRUGS (2)
  1. DUTASTERIDE [Suspect]
     Dosage: .5MG PER DAY
     Route: 048
     Dates: start: 20061031
  2. TAMSULOSIN HCL [Suspect]
     Dosage: .4MG PER DAY
     Route: 048
     Dates: start: 20061031

REACTIONS (6)
  - BODY TEMPERATURE INCREASED [None]
  - BRONCHITIS [None]
  - CHEST DISCOMFORT [None]
  - COUGH [None]
  - LOBAR PNEUMONIA [None]
  - PANCYTOPENIA [None]
